FAERS Safety Report 8893116 (Version 1)
Quarter: 2012Q4

REPORT INFORMATION
  Report Type: Spontaneous
  Country: US (occurrence: None)
  Receive Date: 20121101
  Receipt Date: 20121101
  Transmission Date: 20130627
  Serious: Yes (Other)
  Sender: FDA-Public Use
  Company Number: 2012SA075921

PATIENT
  Sex: Male

DRUGS (1)
  1. ICY HOT POWER GEL [Suspect]
     Indication: NECK PAIN
     Dates: start: 2010, end: 2012

REACTIONS (2)
  - Application site pain [None]
  - Application site vesicles [None]
